FAERS Safety Report 9008345 (Version 1)
Quarter: 2013Q1

REPORT INFORMATION
  Report Type: Spontaneous
  Country: US (occurrence: US)
  Receive Date: 20130111
  Receipt Date: 20130111
  Transmission Date: 20140127
  Serious: No
  Sender: FDA-Public Use
  Company Number: US-PFIZER INC-2013011779

PATIENT
  Sex: Male

DRUGS (4)
  1. LYRICA [Suspect]
     Dosage: 50 MG, 2X/DAY
  2. LYRICA [Suspect]
     Dosage: 100 MG, 2X/DAY
  3. OXYCODONE HYDROCHLORIDE [Suspect]
     Dosage: UNK
  4. LEXAPRO [Suspect]
     Dosage: UNK

REACTIONS (1)
  - Anxiety [Unknown]
